FAERS Safety Report 6943554-3 (Version None)
Quarter: 2010Q3

REPORT INFORMATION
  Report Type: 
  Country: None (occurrence: None)
  Receive Date: 20100826
  Receipt Date: 20100819
  Transmission Date: 20110219
  Serious: Yes (Death, Hospitalization)
  Sender: FDA-Public Use
  Company Number: SE-ELI_LILLY_AND_COMPANY-SE201008005771

PATIENT
  Age: 74 Year
  Sex: Male

DRUGS (18)
  1. ALIMTA [Suspect]
     Indication: LUNG NEOPLASM MALIGNANT
     Dosage: 950 MG, UNKNOWN
     Route: 042
     Dates: start: 20100615, end: 20100615
  2. SYMBICORT [Concomitant]
     Dosage: UNK, UNKNOWN
     Route: 065
  3. OMEPRAZOLE [Concomitant]
     Dosage: UNK, UNKNOWN
     Route: 065
  4. RAMIPRIL HEXAL [Concomitant]
     Dosage: UNK, UNKNOWN
     Route: 065
  5. METOPROLOL SANDOZ [Concomitant]
     Dosage: UNK, UNKNOWN
     Route: 065
  6. OPTINATE SEPTIMUM [Concomitant]
     Dosage: 35 MG, UNK
  7. LIPITOR [Concomitant]
     Dosage: UNK, UNKNOWN
     Route: 065
  8. NITROMEX [Concomitant]
     Dosage: UNK, UNKNOWN
     Route: 065
  9. DIGOXIN [Concomitant]
     Dosage: UNK, UNKNOWN
     Route: 065
  10. FURIX [Concomitant]
     Dosage: UNK, UNKNOWN
     Route: 065
  11. SPIRONOLACTONE [Concomitant]
     Dosage: UNK, UNKNOWN
     Route: 065
  12. FRAGMIN [Concomitant]
     Dosage: UNK, UNKNOWN
     Route: 065
  13. IMDUR [Concomitant]
     Dosage: UNK, UNKNOWN
     Route: 065
  14. CALCICHEW [Concomitant]
     Dosage: UNK, UNKNOWN
     Route: 065
  15. VENTOLIN DISKUS                         /SCH/ [Concomitant]
     Dosage: UNK, UNKNOWN
     Route: 065
  16. METFORMIN MEDA [Concomitant]
     Dosage: UNK, UNKNOWN
     Route: 065
  17. CILAXORAL [Concomitant]
     Dosage: UNK, UNKNOWN
     Route: 065
  18. ZOPIKLON [Concomitant]
     Dosage: UNK, UNKNOWN
     Route: 065

REACTIONS (3)
  - GENERAL PHYSICAL HEALTH DETERIORATION [None]
  - PANCYTOPENIA [None]
  - PNEUMONIA [None]
